FAERS Safety Report 5578833-8 (Version None)
Quarter: 2007Q4

REPORT INFORMATION
  Report Type: 
  Country: None (occurrence: None)
  Receive Date: 20071228
  Receipt Date: 20071217
  Transmission Date: 20080405
  Serious: Yes (Hospitalization)
  Sender: FDA-Public Use
  Company Number: 2007BI026627

PATIENT
  Sex: Female

DRUGS (1)
  1. AVONEX [Suspect]
     Dosage: IM
     Route: 030

REACTIONS (5)
  - BACK PAIN [None]
  - DEPRESSION [None]
  - HIP ARTHROPLASTY [None]
  - INSOMNIA [None]
  - MUSCLE ATROPHY [None]
